FAERS Safety Report 5023564-6 (Version None)
Quarter: 2006Q2

REPORT INFORMATION
  Report Type: 
  Country: None (occurrence: None)
  Receive Date: 20060612
  Receipt Date: 20051025
  Transmission Date: 20061013
  Serious: Yes (Hospitalization, Disabling)
  Sender: FDA-Public Use
  Company Number: US-ROCHE-422740

PATIENT
  Age: 14 Year
  Sex: Female
  Weight: 63.5 kg

DRUGS (2)
  1. ACCUTANE [Suspect]
     Indication: ACNE
     Route: 048
     Dates: start: 19991011, end: 20000615
  2. LORTAB [Concomitant]
     Indication: PAIN
     Dates: start: 20041209

REACTIONS (65)
  - ABASIA [None]
  - ABDOMINAL PAIN [None]
  - ANAEMIA [None]
  - ANHEDONIA [None]
  - ANXIETY [None]
  - ARTHRALGIA [None]
  - BACK INJURY [None]
  - BACK PAIN [None]
  - BACTERIA URINE IDENTIFIED [None]
  - BRONCHIAL HYPERACTIVITY [None]
  - CHONDROMALACIA [None]
  - CHROMATURIA [None]
  - COLITIS [None]
  - COLITIS ULCERATIVE [None]
  - CONFUSIONAL STATE [None]
  - CONTUSION [None]
  - COUGH [None]
  - CYSTITIS [None]
  - DEPRESSED LEVEL OF CONSCIOUSNESS [None]
  - DISEASE RECURRENCE [None]
  - DRUG INEFFECTIVE [None]
  - EPISTAXIS [None]
  - FACE INJURY [None]
  - FALL [None]
  - FATIGUE [None]
  - FEELING ABNORMAL [None]
  - GASTROINTESTINAL DISORDER [None]
  - GLOMERULONEPHRITIS PROLIFERATIVE [None]
  - HAEMATURIA [None]
  - HEADACHE [None]
  - HYPERSENSITIVITY [None]
  - HYPONATRAEMIA [None]
  - INFLAMMATORY BOWEL DISEASE [None]
  - INJURY [None]
  - INTESTINAL HAEMORRHAGE [None]
  - JOINT SPRAIN [None]
  - JOINT SWELLING [None]
  - LOBAR PNEUMONIA [None]
  - MENISCUS LESION [None]
  - MENTAL STATUS CHANGES [None]
  - MUSCLE TWITCHING [None]
  - MUSCULOSKELETAL PAIN [None]
  - NAUSEA [None]
  - PAIN [None]
  - PAIN IN EXTREMITY [None]
  - PREGNANCY TEST POSITIVE [None]
  - PROTEIN URINE PRESENT [None]
  - PROTEINURIA [None]
  - PYREXIA [None]
  - RASH [None]
  - RECTAL HAEMORRHAGE [None]
  - RED BLOOD CELL SEDIMENTATION RATE INCREASED [None]
  - RED BLOOD CELLS URINE POSITIVE [None]
  - SINUSITIS [None]
  - SWELLING [None]
  - TREMOR [None]
  - URINARY CASTS [None]
  - URINARY SEDIMENT PRESENT [None]
  - URINARY TRACT INFECTION [None]
  - URINE LEUKOCYTE ESTERASE POSITIVE [None]
  - VAGINAL DISORDER [None]
  - VOMITING [None]
  - WHITE BLOOD CELL COUNT INCREASED [None]
  - WHITE BLOOD CELLS URINE POSITIVE [None]
  - WOUND SECRETION [None]
